FAERS Safety Report 6015104-X (Version None)
Quarter: 2008Q4

REPORT INFORMATION
  Report Type: 
  Country: None (occurrence: None)
  Receive Date: 20081222
  Receipt Date: 20081218
  Transmission Date: 20090506
  Serious: Yes (Other)
  Sender: FDA-Public Use
  Company Number: US-BRISTOL-MYERS SQUIBB COMPANY-14409684

PATIENT
  Age: 49 Year
  Sex: Female

DRUGS (2)
  1. PACLITAXEL [Suspect]
     Indication: OVARIAN CANCER
  2. CARBOPLATIN [Suspect]
     Indication: OVARIAN CANCER

REACTIONS (4)
  - ARTHRITIS [None]
  - NORMOCHROMIC NORMOCYTIC ANAEMIA [None]
  - PLEURISY [None]
  - SYSTEMIC LUPUS ERYTHEMATOSUS [None]
